FAERS Safety Report 22259438 (Version 1)
Quarter: 2023Q2

REPORT INFORMATION
  Report Type: Report from Study
  Country: US (occurrence: US)
  Receive Date: 20230427
  Receipt Date: 20230427
  Transmission Date: 20230721
  Serious: Yes (Hospitalization)
  Sender: FDA-Public Use
  Company Number: US-MYLANLABS-2023M1043651

PATIENT
  Age: 71 Year
  Sex: Male

DRUGS (2)
  1. DEXAMETHASONE [Suspect]
     Active Substance: DEXAMETHASONE
     Indication: COVID-19 pneumonia
     Dosage: 20 MG DAILY SCHEDULED FOR FIVE DAYS
     Route: 065
     Dates: start: 2021
  2. DEXAMETHASONE [Suspect]
     Active Substance: DEXAMETHASONE
     Dosage: 10 MILLIGRAM, QD (FOLLOWED BY 10 MG DAILY FOR FIVE DAYS)
     Route: 065
     Dates: start: 2021

REACTIONS (3)
  - Device related infection [Unknown]
  - Haematological infection [Unknown]
  - Off label use [Unknown]

NARRATIVE: CASE EVENT DATE: 20210101
